FAERS Safety Report 6811509-5 (Version None)
Quarter: 2010Q2

REPORT INFORMATION
  Report Type: 
  Country: None (occurrence: None)
  Receive Date: 20100625
  Receipt Date: 20100607
  Transmission Date: 20101027
  Serious: Yes (Life-Threatening)
  Sender: FDA-Public Use
  Company Number: 1-22924892

PATIENT
  Age: 69 Year
  Sex: Male

DRUGS (3)
  1. GLIMEPIRIDE [Suspect]
     Indication: DIABETES MELLITUS
     Dosage: 1 MG OD, ORAL
     Route: 048
  2. VORICONAZOLE [Suspect]
     Indication: ANTIFUNGAL TREATMENT
     Dosage: 400 MG X 2 200 MG 2X/DAY, ORAL
     Route: 048
  3. VORICONAZOLE [Suspect]
     Indication: EVIDENCE BASED TREATMENT
     Dosage: 400 MG X 2 200 MG 2X/DAY, ORAL
     Route: 048

REACTIONS (5)
  - CONFUSIONAL STATE [None]
  - DELIRIUM [None]
  - DRUG INTERACTION [None]
  - HYPOGLYCAEMIC UNCONSCIOUSNESS [None]
  - PRESSURE OF SPEECH [None]
